FAERS Safety Report 23794906 (Version 1)
Quarter: 2024Q2

REPORT INFORMATION
  Report Type: Spontaneous
  Country: ZA (occurrence: None)
  Receive Date: 20240429
  Receipt Date: 20240429
  Transmission Date: 20240716
  Serious: Yes (Death)
  Sender: FDA-Public Use
  Company Number: 2024A100567

PATIENT
  Age: 78 Year
  Sex: Male

DRUGS (6)
  1. BUDESONIDE\FORMOTEROL [Suspect]
     Active Substance: BUDESONIDE\FORMOTEROL
     Indication: Asthma
     Dosage: 160 UG UNKNOWN UNKNOWN
     Route: 055
  2. SPIRACTIN [Concomitant]
     Indication: Hypertension
     Dosage: 25.0MG UNKNOWN
     Route: 048
  3. RISPERIDONE [Concomitant]
     Active Substance: RISPERIDONE
     Indication: Epilepsy
     Dosage: 0.5MG UNKNOWN
     Route: 058
  4. URISPAS [Concomitant]
     Active Substance: FLAVOXATE HYDROCHLORIDE
     Indication: Hypertonic bladder
     Dosage: 200.0MG UNKNOWN
     Route: 048
  5. ZOLPIDEM TARTRATE [Concomitant]
     Active Substance: ZOLPIDEM TARTRATE
     Indication: Insomnia
     Dosage: 10.0MG UNKNOWN
     Route: 048
  6. SEREFLO SYNCHROBREATHE HFA [Concomitant]
     Indication: Asthma
     Dosage: 25.0MG UNKNOWN
     Route: 055

REACTIONS (1)
  - Death [Fatal]
